FAERS Safety Report 5422161-8 (Version None)
Quarter: 2007Q3

REPORT INFORMATION
  Report Type: 
  Country: None (occurrence: None)
  Receive Date: 20070820
  Receipt Date: 20070806
  Transmission Date: 20080115
  Serious: Yes (Hospitalization)
  Sender: FDA-Public Use
  Company Number: MEDI-0005935

PATIENT
  Age: 7 Month
  Sex: Female

DRUGS (12)
  1. SYNAGIS [Suspect]
     Indication: ANTIVIRAL PROPHYLAXIS
     Dosage: 80 MG, INTRAMUSCULAR, 70 MG, INTRAMUSCULAR,  90 MG, INTRAMUSCULAR
     Route: 030
     Dates: start: 20060920, end: 20061113
  2. SYNAGIS [Suspect]
     Indication: ANTIVIRAL PROPHYLAXIS
     Dosage: 80 MG, INTRAMUSCULAR, 70 MG, INTRAMUSCULAR,  90 MG, INTRAMUSCULAR
     Route: 030
     Dates: start: 20060920
  3. SYNAGIS [Suspect]
     Indication: ANTIVIRAL PROPHYLAXIS
     Dosage: 80 MG, INTRAMUSCULAR, 70 MG, INTRAMUSCULAR,  90 MG, INTRAMUSCULAR
     Route: 030
     Dates: start: 20061006
  4. SYNAGIS [Suspect]
     Indication: ANTIVIRAL PROPHYLAXIS
     Dosage: 80 MG, INTRAMUSCULAR, 70 MG, INTRAMUSCULAR,  90 MG, INTRAMUSCULAR
     Route: 030
     Dates: start: 20070216
  5. SYNAGIS [Suspect]
     Indication: ANTIVIRAL PROPHYLAXIS
     Dosage: 80 MG, INTRAMUSCULAR, 70 MG, INTRAMUSCULAR,  90 MG, INTRAMUSCULAR
     Route: 030
     Dates: start: 20070315
  6. FUROSEMIDE [Concomitant]
  7. SPIRONOLACTONE [Concomitant]
  8. LEVOTHYROXINE SODIUM [Concomitant]
  9. FERRIC PYROPHOSPHATE (FERRIC PYROPHOSPHATE) [Concomitant]
  10. DIPTHERIA-PERTUSSIS-TETANUS (DIPTHERIA AND TETANUS TOXOIDS AND PERTUSS [Concomitant]
  11. BCG (BCG VACCINE) [Concomitant]
  12. ENALAPRIL MALETATE (ENALAPRIL MALEATE) [Concomitant]

REACTIONS (1)
  - POSTPERICARDIOTOMY SYNDROME [None]
